FAERS Safety Report 4431870-9 (Version None)
Quarter: 2004Q3

REPORT INFORMATION
  Report Type: 
  Country: None (occurrence: None)
  Receive Date: 20040819
  Receipt Date: 20040804
  Transmission Date: 20050211
  Serious: Yes (Hospitalization)
  Sender: FDA-Public Use
  Company Number: F01200400265

PATIENT
  Age: 66 Year
  Sex: Male

DRUGS (4)
  1. (OXALIPLATIN) - SOLUTION - 85 MG/M2 [Suspect]
     Indication: COLORECTAL CANCER
     Dosage: 85 MG/M2 Q2W
     Dates: start: 20040112, end: 20040112
  2. FLUOROURACIL [Suspect]
     Dates: start: 20040112, end: 20040112
  3. LEUCOVORIN CALCIUM [Suspect]
     Dates: start: 20040112, end: 20040112
  4. CETUXIMAB - SOLUTION [Suspect]
     Dates: start: 20040119, end: 20040119

REACTIONS (20)
  - AGITATION [None]
  - BLOOD BILIRUBIN INCREASED [None]
  - CONFUSIONAL STATE [None]
  - DEHYDRATION [None]
  - DIARRHOEA [None]
  - FALL [None]
  - FEBRILE NEUTROPENIA [None]
  - FUNGAL OESOPHAGITIS [None]
  - GASTRIC ULCER [None]
  - HEPATITIS CHOLESTATIC [None]
  - HIATUS HERNIA [None]
  - HYPERNATRAEMIA [None]
  - HYPOKALAEMIA [None]
  - OESOPHAGITIS [None]
  - PARAESTHESIA [None]
  - PNEUMONIA [None]
  - RENAL FAILURE ACUTE [None]
  - SEPTIC SHOCK [None]
  - SKIN TOXICITY [None]
  - STENOTROPHOMONAS INFECTION [None]
